FAERS Safety Report 25754732 (Version 2)
Quarter: 2025Q3

REPORT INFORMATION
  Report Type: Spontaneous
  Country: PA (occurrence: PA)
  Receive Date: 20250903
  Receipt Date: 20250923
  Transmission Date: 20251020
  Serious: Yes (Hospitalization)
  Sender: ROCHE
  Company Number: PA-ROCHE-10000376178

PATIENT
  Age: 16 Year
  Sex: Male

DRUGS (4)
  1. EMICIZUMAB [Suspect]
     Active Substance: EMICIZUMAB
     Indication: Factor VIII deficiency
     Dosage: EMICIZUMAB 150MG (1)?EMICIZUMAB 30MG (2)?EMICIZUMAB, 105 MG/0.7 ML, SOLUTION, VIAL, AND EMICIZUMAB,
     Route: 058
     Dates: start: 2024
  2. EMICIZUMAB [Suspect]
     Active Substance: EMICIZUMAB
     Indication: Haemophilia A without inhibitors
  3. ANTIHEMOPHILIC FACTOR HUMAN [Concomitant]
     Active Substance: ANTIHEMOPHILIC FACTOR HUMAN
     Indication: Factor VIII deficiency
  4. COAGULATION FACTOR VII HUMAN [Concomitant]
     Active Substance: COAGULATION FACTOR VII HUMAN
     Indication: Factor VIII deficiency

REACTIONS (4)
  - Post procedural haemorrhage [Recovered/Resolved]
  - Syncope [Recovered/Resolved]
  - Seizure [Recovered/Resolved]
  - Post procedural haemorrhage [Recovered/Resolved]
